FAERS Safety Report 12343443 (Version 3)
Quarter: 2017Q1

REPORT INFORMATION
  Report Type: Spontaneous
  Country: US (occurrence: US)
  Receive Date: 20160506
  Receipt Date: 20170316
  Transmission Date: 20170428
  Serious: No
  Sender: FDA-Public Use
  Company Number: US-PFIZER INC-2016203730

PATIENT
  Age: 72 Year
  Sex: Female

DRUGS (4)
  1. FLECTOR [Suspect]
     Active Substance: DICLOFENAC EPOLAMINE
     Indication: ARTHRITIS
     Dosage: 1 DF, 2X/DAY
     Dates: start: 2010
  2. BIOFREEZE [Concomitant]
     Active Substance: MENTHOL
     Dosage: UNK
  3. FLECTOR [Suspect]
     Active Substance: DICLOFENAC EPOLAMINE
     Indication: OSTEOARTHRITIS
  4. FLECTOR [Suspect]
     Active Substance: DICLOFENAC EPOLAMINE
     Indication: PAIN

REACTIONS (3)
  - Product use issue [Unknown]
  - Intentional overdose [Unknown]
  - Malaise [Unknown]
